FAERS Safety Report 4933269-5 (Version None)
Quarter: 2006Q1

REPORT INFORMATION
  Report Type: 
  Country: None (occurrence: None)
  Receive Date: 20060306
  Receipt Date: 20060221
  Transmission Date: 20060701
  Serious: Yes (Hospitalization, Disabling)
  Sender: FDA-Public Use
  Company Number: US-MERCK-0602USA05268

PATIENT
  Sex: Female
  Weight: 57 kg

DRUGS (2)
  1. VIOXX [Suspect]
     Indication: EXOSTOSIS
     Route: 048
     Dates: start: 20010401, end: 20030301
  2. VIOXX [Suspect]
     Indication: BURSITIS
     Route: 048
     Dates: start: 20010401, end: 20030301

REACTIONS (5)
  - ARTERIAL OCCLUSIVE DISEASE [None]
  - CHEST PAIN [None]
  - RENAL ARTERY STENT PLACEMENT [None]
  - STENT PLACEMENT [None]
  - TRIPLE VESSEL BYPASS GRAFT [None]
